FAERS Safety Report 6997033-8 (Version None)
Quarter: 2010Q3

REPORT INFORMATION
  Report Type: 
  Country: None (occurrence: None)
  Receive Date: 20100918
  Receipt Date: 20090910
  Transmission Date: 20110219
  Serious: No
  Sender: FDA-Public Use
  Company Number: US-WYE-H10942409

PATIENT
  Sex: Female

DRUGS (6)
  1. EFFEXOR XR [Suspect]
     Indication: DEPRESSION
     Route: 048
     Dates: start: 20070701, end: 20090701
  2. EFFEXOR XR [Suspect]
     Dosage: ^STARTED TO WEAN^
     Route: 048
     Dates: start: 20090701, end: 20090701
  3. EFFEXOR XR [Suspect]
     Route: 048
     Dates: start: 20090701, end: 20090101
  4. EFFEXOR XR [Suspect]
     Route: 048
     Dates: start: 20090101, end: 20090101
  5. EFFEXOR XR [Suspect]
     Route: 048
     Dates: start: 20090101, end: 20090101
  6. EFFEXOR XR [Suspect]
     Route: 048
     Dates: start: 20090101

REACTIONS (6)
  - CHILLS [None]
  - DIZZINESS [None]
  - DRUG EXPOSURE DURING PREGNANCY [None]
  - DRUG WITHDRAWAL SYNDROME [None]
  - NAUSEA [None]
  - VOMITING [None]
